FAERS Safety Report 10243226 (Version 1)
Quarter: 2014Q2

REPORT INFORMATION
  Report Type: Spontaneous
  Country: US (occurrence: US)
  Receive Date: 20140618
  Receipt Date: 20140618
  Transmission Date: 20141212
  Serious: Yes (Hospitalization)
  Sender: FDA-Public Use
  Company Number: US-JNJFOC-20140607397

PATIENT
  Sex: Male
  Weight: 79.38 kg

DRUGS (1)
  1. RISPERDAL [Suspect]
     Indication: MENTAL DISORDER
     Route: 048
     Dates: start: 2007, end: 2010

REACTIONS (3)
  - Arthropathy [Unknown]
  - Dyskinesia [Unknown]
  - Muscle disorder [Unknown]
